FAERS Safety Report 9323602 (Version 5)
Quarter: 2013Q4

REPORT INFORMATION
  Report Type: Report from Study
  Country: ES (occurrence: ES)
  Receive Date: 20130603
  Receipt Date: 20131104
  Transmission Date: 20140711
  Serious: Yes (Death, Life-Threatening, Hospitalization)
  Sender: FDA-Public Use
  Company Number: ES-CELGENEUS-144-21880-13053279

PATIENT
  Age: 65 Year
  Sex: Female

DRUGS (16)
  1. REVLIMID [Suspect]
     Indication: PLASMA CELL MYELOMA
     Dosage: 25 MILLIGRAM
     Route: 048
     Dates: start: 20110204, end: 20110224
  2. REVLIMID [Suspect]
     Dosage: 25 MILLIGRAM
     Route: 048
     Dates: start: 20111111, end: 20111124
  3. REVLIMID [Suspect]
     Route: 048
     Dates: end: 201112
  4. DEXAMETHASONE [Suspect]
     Indication: PLASMA CELL MYELOMA
     Route: 048
     Dates: start: 20110204, end: 20110303
  5. DEXAMETHASONE [Suspect]
     Route: 048
     Dates: start: 20111111, end: 20111124
  6. LOW MOLECULAR WEIGHT HEPARIN [Concomitant]
     Indication: THROMBOSIS PROPHYLAXIS
     Route: 065
     Dates: start: 20111124, end: 20130319
  7. LOW MOLECULAR WEIGHT HEPARIN [Concomitant]
     Indication: ANTICOAGULANT THERAPY
     Route: 065
  8. PREGABALIN [Concomitant]
     Indication: ANXIOLYTIC THERAPY
     Dosage: 50 MILLIGRAM
     Route: 065
     Dates: start: 20070503
  9. INSULIN [Concomitant]
     Indication: DIABETES MELLITUS
     Route: 065
     Dates: start: 20090625
  10. MIRTAZAPINE [Concomitant]
     Indication: ANTIDEPRESSANT THERAPY
     Dosage: 15 MILLIGRAM
     Route: 065
     Dates: start: 20110201
  11. PANTOPRAZOLE [Concomitant]
     Indication: PROPHYLAXIS
     Dosage: 40 MILLIGRAM
     Route: 065
     Dates: start: 20110201
  12. ALPRAZOLAM [Concomitant]
     Indication: ANXIOLYTIC THERAPY
     Dosage: .25 MICROGRAM
     Route: 065
     Dates: start: 20110201
  13. LEVOFLOXACIN [Concomitant]
     Indication: ANTI-INFECTIVE THERAPY
     Route: 065
     Dates: start: 20130321, end: 20130330
  14. LORAZEPAM [Concomitant]
     Indication: ANXIOLYTIC THERAPY
     Dosage: 1 MILLIGRAM
     Route: 065
     Dates: start: 20130110
  15. ACENOCUMAROL [Concomitant]
     Indication: ANTICOAGULANT THERAPY
     Route: 065
     Dates: start: 20130320, end: 20130510
  16. HEPARIN [Concomitant]
     Indication: ANTICOAGULANT THERAPY
     Route: 065
     Dates: start: 20130511

REACTIONS (1)
  - Acute myeloid leukaemia [Fatal]
